FAERS Safety Report 21552128 (Version 2)
Quarter: 2022Q4

REPORT INFORMATION
  Report Type: Report from Study
  Country: GB (occurrence: GB)
  Receive Date: 20221104
  Receipt Date: 20221109
  Transmission Date: 20230112
  Serious: Yes (Other)
  Sender: FDA-Public Use
  Company Number: GB-ABBVIE-4186304

PATIENT
  Age: 46 Year
  Sex: Female

DRUGS (1)
  1. RISANKIZUMAB [Suspect]
     Active Substance: RISANKIZUMAB
     Indication: Product used for unknown indication
     Route: 050
     Dates: start: 20210809

REACTIONS (1)
  - Pseudomyxoma peritonei [Not Recovered/Not Resolved]

NARRATIVE: CASE EVENT DATE: 20221031
